FAERS Safety Report 6530038-X (Version None)
Quarter: 2009Q4

REPORT INFORMATION
  Report Type: 
  Country: None (occurrence: None)
  Receive Date: 20091231
  Receipt Date: 20091217
  Transmission Date: 20100525
  Serious: Yes (Life-Threatening, Hospitalization, Other)
  Sender: FDA-Public Use
  Company Number: 2009AL007926

PATIENT
  Age: 92 Year
  Sex: Female

DRUGS (3)
  1. DILTIAZEM HYDROCHLORIDE [Suspect]
     Indication: HEART RATE
     Dosage: 200 MG;QD;PO
     Route: 048
     Dates: start: 20091124, end: 20091205
  2. PROPRANOLOL [Suspect]
     Indication: ANXIETY
     Dosage: 10 MG;BID;PO
     Route: 048
     Dates: start: 20091202, end: 20091205
  3. BISOPROLOL [Concomitant]

REACTIONS (5)
  - ATRIAL FIBRILLATION [None]
  - ATRIOVENTRICULAR BLOCK COMPLETE [None]
  - DEPRESSED LEVEL OF CONSCIOUSNESS [None]
  - FALL [None]
  - HYPOTENSION [None]
